FAERS Safety Report 7304778-9 (Version None)
Quarter: 2011Q1

REPORT INFORMATION
  Report Type: 
  Country: None (occurrence: None)
  Receive Date: 20110222
  Receipt Date: 20110215
  Transmission Date: 20110831
  Serious: Yes (Other)
  Sender: FDA-Public Use
  Company Number: US-PFIZER INC-2010130701

PATIENT
  Sex: Female
  Weight: 50.794 kg

DRUGS (4)
  1. LYRICA [Suspect]
  2. QUINIDINE [Concomitant]
     Indication: ATRIAL FIBRILLATION
     Dosage: UNK
  3. DRONEDARONE [Concomitant]
     Indication: ATRIAL FIBRILLATION
     Dosage: UNK
  4. LYRICA [Suspect]
     Indication: TRIGEMINAL NEURALGIA
     Dosage: 150 MG, 1X/DAY
     Route: 048
     Dates: start: 20100909

REACTIONS (4)
  - FATIGUE [None]
  - DIPLOPIA [None]
  - SOMNOLENCE [None]
  - INCONTINENCE [None]
